FAERS Safety Report 17499104 (Version 1)
Quarter: 2020Q1

REPORT INFORMATION
  Report Type: Report from Study
  Country: ES (occurrence: ES)
  Receive Date: 20200305
  Receipt Date: 20200305
  Transmission Date: 20200409
  Serious: Yes (Life-Threatening, Hospitalization)
  Sender: FDA-Public Use
  Company Number: ES-TEVA-2020-ES-1193797

PATIENT
  Age: 65 Year
  Sex: Male

DRUGS (2)
  1. IBUPROFENO(1769A) [Suspect]
     Active Substance: IBUPROFEN
     Dosage: 2 DOSAGEEEFORM
     Route: 048
     Dates: start: 201711, end: 201711
  2. ACETILSALICILICOACIDO(176A) [Interacting]
     Active Substance: ASPIRIN
     Indication: DIPLOPIA
     Dosage: 300 MILLIGRAM
     Route: 048
     Dates: start: 20170727, end: 20171120

REACTIONS (2)
  - Drug interaction [Unknown]
  - Lower gastrointestinal haemorrhage [Recovered/Resolved]

NARRATIVE: CASE EVENT DATE: 20171119
